FAERS Safety Report 7297124-0 (Version None)
Quarter: 2011Q1

REPORT INFORMATION
  Report Type: 
  Country: None (occurrence: None)
  Receive Date: 20110216
  Receipt Date: 20110211
  Transmission Date: 20110831
  Serious: No
  Sender: FDA-Public Use
  Company Number: US-PFIZER INC-2011031511

PATIENT
  Sex: Female
  Weight: 77.098 kg

DRUGS (5)
  1. LITHIUM [Concomitant]
     Dosage: UNK
  2. GEODON [Suspect]
     Indication: BIPOLAR DISORDER
  3. GEODON [Suspect]
     Indication: BIPOLAR I DISORDER
     Dosage: 40 MG, DAILY
     Route: 048
     Dates: start: 20110129
  4. SYNTHROID [Concomitant]
     Dosage: UNK
  5. ADVIL [Concomitant]
     Dosage: UNK

REACTIONS (1)
  - FEAR [None]
